FAERS Safety Report 8580897-4 (Version None)
Quarter: 2012Q3

REPORT INFORMATION
  Report Type: 
  Country: None (occurrence: None)
  Receive Date: 20120809
  Receipt Date: 20120806
  Transmission Date: 20120928
  Serious: No
  Sender: FDA-Public Use
  Company Number: US-B.I. PHARMACEUTICALS,INC./RIDGEFIELD-2012-BP-17692BP

PATIENT
  Age: 73 Year
  Sex: Female

DRUGS (14)
  1. CARVEDILOL [Concomitant]
     Indication: CARDIOVASCULAR EVENT PROPHYLAXIS
     Dosage: 6.25 MG
     Route: 048
  2. GLIPIZIDE [Concomitant]
     Indication: DIABETES MELLITUS
     Dosage: 20 MG
     Route: 048
  3. LEVEMIR [Concomitant]
     Indication: DIABETES MELLITUS
     Dosage: 10 U
     Route: 058
  4. NOVOLOG [Concomitant]
     Indication: DIABETES MELLITUS
     Route: 058
  5. SPIRIVA [Suspect]
     Dosage: 18 MCG
     Route: 048
     Dates: start: 20120806, end: 20120806
  6. VASOTEC [Concomitant]
     Dosage: 40 MG
     Route: 048
  7. VITAMIN B-12 [Concomitant]
     Route: 030
  8. OMEPRAZOLE [Concomitant]
     Dosage: 40 MG
     Route: 048
  9. SPIRIVA [Suspect]
     Indication: CHRONIC OBSTRUCTIVE PULMONARY DISEASE
     Dosage: 18 MCG
     Route: 055
     Dates: start: 20120501
  10. SODIUM CHLORIDE [Concomitant]
     Dosage: 40 MG
     Route: 048
  11. DALIRESP [Concomitant]
     Indication: DYSPNOEA
     Dosage: 500 MCG
  12. COENZYME Q10 [Concomitant]
     Dosage: 200 MG
     Route: 048
  13. METFORMIN HYDROCHLORIDE [Concomitant]
     Indication: DIABETES MELLITUS
     Dosage: 1000 MG
     Route: 048
  14. PRAVASTATIN [Concomitant]
     Dosage: 40 MG
     Route: 048

REACTIONS (1)
  - INCORRECT ROUTE OF DRUG ADMINISTRATION [None]
